FAERS Safety Report 7523898-7 (Version None)
Quarter: 2011Q2

REPORT INFORMATION
  Report Type: 
  Country: None (occurrence: None)
  Receive Date: 20110603
  Receipt Date: 20110524
  Transmission Date: 20111010
  Serious: Yes (Other)
  Sender: FDA-Public Use
  Company Number: US-MERCK-1104USA00383

PATIENT
  Age: 50 Year
  Sex: Male

DRUGS (1)
  1. ZOCOR [Suspect]
     Indication: BLOOD CHOLESTEROL INCREASED
     Route: 048
     Dates: start: 20010401, end: 20100901

REACTIONS (11)
  - GALLBLADDER DISORDER [None]
  - ABDOMINAL PAIN [None]
  - BLOOD GLUCOSE INCREASED [None]
  - DIZZINESS [None]
  - LIPASE INCREASED [None]
  - SCAR EXCISION [None]
  - RASH [None]
  - MUSCLE SPASMS [None]
  - HYPOKINESIA [None]
  - MUSCULOSKELETAL DISORDER [None]
  - ABDOMINAL PAIN UPPER [None]
